FAERS Safety Report 6113050-4 (Version None)
Quarter: 2009Q1

REPORT INFORMATION
  Report Type: 
  Country: None (occurrence: None)
  Receive Date: 20090312
  Receipt Date: 20090305
  Transmission Date: 20090719
  Serious: Yes (Hospitalization)
  Sender: FDA-Public Use
  Company Number: US-KINGPHARMUSA00001-K200900248

PATIENT
  Age: 75 Year
  Sex: Male
  Weight: 79.002 kg

DRUGS (13)
  1. ALTACE [Suspect]
     Indication: HYPERTENSION
     Dosage: 10 MG, QD
     Route: 048
     Dates: start: 20020701, end: 20090115
  2. HYDROCHLOROTHIAZIDE [Suspect]
     Indication: HYPERTENSION
     Dosage: 25 MG, QD
     Route: 048
     Dates: start: 20020701, end: 20090115
  3. INVESTIGATIONAL DRUG ^ZD4054^ [Suspect]
     Indication: PROSTATE CANCER
     Dosage: 10 MG, UNK
     Route: 048
     Dates: start: 20081017, end: 20090102
  4. INVESTIGATIONAL DRUG ^ZD4054^ [Suspect]
     Indication: METASTASES TO BONE
     Dosage: 10 MG, UNK
     Route: 048
     Dates: start: 20090105, end: 20090115
  5. INVESTIGATIONAL DRUG ^ZD4054^ [Suspect]
     Dosage: 10 MG, UNK
     Route: 048
     Dates: start: 20090125
  6. ASPIRIN [Concomitant]
     Dosage: 81 MG, UNK
     Route: 048
     Dates: start: 20020701
  7. METOPROLOL TARTRATE [Concomitant]
     Indication: MYOCARDIAL ISCHAEMIA
     Dosage: 100 MG, UNK
     Route: 048
     Dates: start: 20020701, end: 20090115
  8. BICALUTAMIDE [Concomitant]
     Indication: PROSTATE CANCER
     Dosage: 50 MG, UNK
     Route: 048
     Dates: start: 20010101
  9. SIMVASTATIN [Concomitant]
     Indication: HYPERLIPIDAEMIA
     Dosage: 40 MG, UNK
     Route: 048
     Dates: start: 20020701
  10. RANITIDINE [Concomitant]
     Indication: DYSPEPSIA
     Dosage: 150 MG, UNK
     Route: 048
     Dates: start: 20030101
  11. RANITIDINE [Concomitant]
     Indication: REFLUX OESOPHAGITIS
  12. LEUPROLIDE ACETATE [Concomitant]
     Indication: PROSTATE CANCER
     Dosage: 1 MG, CYCLICAL, EVERY 3 MONTHS
     Route: 058
     Dates: start: 20000803
  13. ZOLEDRONIC ACID [Concomitant]
     Indication: METASTASES TO BONE
     Dosage: 4 MG, UNK
     Route: 042
     Dates: start: 20060615

REACTIONS (8)
  - ANAEMIA [None]
  - ASTHENIA [None]
  - ATRIAL FLUTTER [None]
  - DIZZINESS EXERTIONAL [None]
  - HYPOTENSION [None]
  - MYOCARDIAL INFARCTION [None]
  - RENAL FAILURE ACUTE [None]
  - VISION BLURRED [None]
